FAERS Safety Report 9807727 (Version 1)
Quarter: 2014Q1

REPORT INFORMATION
  Report Type: Spontaneous
  Country: US (occurrence: US)
  Receive Date: 20140110
  Receipt Date: 20140110
  Transmission Date: 20141002
  Serious: No
  Sender: FDA-Public Use
  Company Number: US-B.I. PHARMACEUTICALS,INC./RIDGEFIELD-2014-BI-00170BP

PATIENT
  Age: 54 Year
  Sex: Female
  Weight: 82 kg

DRUGS (10)
  1. COMBIVENT [Suspect]
     Indication: CHRONIC OBSTRUCTIVE PULMONARY DISEASE
     Dosage: STRENGTH: 20 MCG / 100 MCG; DAILY DOSE: 80 MCG/400 MCG
     Route: 055
     Dates: start: 201306
  2. DICLOFENAC [Concomitant]
     Indication: ARTHRITIS
     Dosage: 150 MG
     Route: 048
  3. ADVAIR [Concomitant]
     Indication: CHRONIC OBSTRUCTIVE PULMONARY DISEASE
     Dosage: FORMULATION: INHALATION SPRAY, STRENGTH: 230/21 MCG; DAILY DOSE: 920/84 MCG
     Route: 055
  4. ISOSORBIDE MONONITRATE [Concomitant]
     Indication: CHEST PAIN
     Dosage: 30 MG
     Route: 048
  5. EFFIENT [Concomitant]
     Indication: STENT PLACEMENT
     Dosage: 10 MG
     Route: 048
  6. METOPROLOL [Concomitant]
     Indication: CHEST PAIN
     Dosage: 50 MG
     Route: 048
  7. TRAMADOL [Concomitant]
     Indication: PAIN
     Dosage: 100 MG
     Route: 048
  8. LISINOPRIL [Concomitant]
     Indication: HYPERTENSION
     Dosage: 20 MG
     Route: 048
  9. CRESTOR [Concomitant]
     Indication: BLOOD CHOLESTEROL INCREASED
     Dosage: 20 MG
     Route: 048
  10. PAROXETINE [Concomitant]
     Indication: ANXIETY
     Dosage: 20 MG
     Route: 048

REACTIONS (3)
  - Nausea [Not Recovered/Not Resolved]
  - Abdominal discomfort [Not Recovered/Not Resolved]
  - Fatigue [Not Recovered/Not Resolved]
